FAERS Safety Report 6820970-1 (Version None)
Quarter: 2010Q3

REPORT INFORMATION
  Report Type: 
  Country: None (occurrence: None)
  Receive Date: 20100707
  Receipt Date: 20070827
  Transmission Date: 20110219
  Serious: No
  Sender: FDA-Public Use
  Company Number: US-PFIZER INC-2007068037

PATIENT
  Sex: Female

DRUGS (16)
  1. VISTARIL CAP [Suspect]
     Indication: PAIN
  2. VISTARIL CAP [Suspect]
     Indication: DRUG EFFECT INCREASED
  3. OXYCONTIN [Concomitant]
  4. LEVOTHYROXINE SODIUM [Concomitant]
     Indication: HYPOTHYROIDISM
  5. SKELAXIN [Concomitant]
  6. FLEXERIL [Concomitant]
  7. KLONOPIN [Concomitant]
  8. ALL OTHER THERAPEUTIC PRODUCTS [Concomitant]
     Indication: CONSTIPATION
  9. VALIUM [Concomitant]
  10. PROMETHAZINE [Concomitant]
  11. ZOMIG [Concomitant]
  12. FIORICET [Concomitant]
  13. CALCIUM CARBONATE [Concomitant]
  14. MULTI-VITAMINS [Concomitant]
  15. BISACODYL [Concomitant]
  16. HYDROXYZINE [Concomitant]

REACTIONS (1)
  - DRUG INEFFECTIVE [None]
